FAERS Safety Report 5590351-X (Version None)
Quarter: 2008Q1

REPORT INFORMATION
  Report Type: 
  Country: None (occurrence: None)
  Receive Date: 20080109
  Receipt Date: 20080104
  Transmission Date: 20080703
  Serious: Yes (Hospitalization)
  Sender: FDA-Public Use
  Company Number: FABR-12280

PATIENT
  Age: 34 Year
  Sex: Male

DRUGS (5)
  1. FABRAZYME [Suspect]
     Indication: FABRY'S DISEASE
     Dosage: 70 MG, QW, INTRAVENOUS; 70 MG, Q2W, INTRAVENOUS
     Route: 042
     Dates: start: 20040513
  2. BENADRYL (DIPHENHYDRAMINE HYDROCHLORIDE) INTRAVENOUS INFUSION [Concomitant]
  3. ZOFRAN (ONDANSETRON) INTRAVENOUS INFUSION [Concomitant]
  4. DEMEROL (PETHIDINE HYDROCHLORIDE) INTRAVENOUS INFUSION [Concomitant]
  5. DEMEROL (PETHIDINE HYDROCHLORIDE) INTRAVENOUS INFUSION [Concomitant]

REACTIONS (2)
  - DEPRESSION [None]
  - OVERDOSE [None]
